FAERS Safety Report 4817917-6 (Version None)
Quarter: 2005Q3

REPORT INFORMATION
  Report Type: 
  Country: None (occurrence: None)
  Receive Date: 20050929
  Receipt Date: 20050808
  Transmission Date: 20060218
  Serious: No
  Sender: FDA-Public Use
  Company Number: 05P-163-0305111-00

PATIENT
  Age: 78 Year
  Sex: Female
  Weight: 58.0604 kg

DRUGS (12)
  1. HUMIRA [Suspect]
     Indication: RHEUMATOID ARTHRITIS
     Dosage: 40 MG, 1 IN 2 WK, SUBCUTANEOUS ; 40 MG, 1 IN 1 WK, SUBCUTANEOUS
     Route: 058
     Dates: start: 20040901, end: 20050601
  2. HUMIRA [Suspect]
     Indication: RHEUMATOID ARTHRITIS
     Dosage: 40 MG, 1 IN 2 WK, SUBCUTANEOUS ; 40 MG, 1 IN 1 WK, SUBCUTANEOUS
     Route: 058
     Dates: start: 20050601
  3. PREDNISONE [Concomitant]
  4. METHOTREXATE [Concomitant]
  5. PEDIACARE COUGH-COLD [Concomitant]
  6. ATENOLOL [Concomitant]
  7. GUANFACINE HYDROCHLORIDE [Concomitant]
  8. FOLIC ACID [Concomitant]
  9. BLOCKADRON [Concomitant]
  10. TRAVATAN [Concomitant]
  11. LEKOVIT CA [Concomitant]
  12. HYDROXYCHLOROQUINE PHOSPHATE [Concomitant]

REACTIONS (2)
  - ANKLE FRACTURE [None]
  - RHEUMATOID ARTHRITIS [None]
